FAERS Safety Report 15252236 (Version 1)
Quarter: 2018Q3

REPORT INFORMATION
  Report Type: Spontaneous
  Country: US (occurrence: US)
  Receive Date: 20180717
  Receipt Date: 20180717
  Transmission Date: 20181010
  Serious: Yes (Disabling)
  Sender: FDA-Public Use
  Company Number: None

PATIENT
  Age: 76 Year
  Sex: Male
  Weight: 101.25 kg

DRUGS (9)
  1. VALSARTAN. [Concomitant]
     Active Substance: VALSARTAN
  2. BYSTOLIC [Concomitant]
     Active Substance: NEBIVOLOL HYDROCHLORIDE
  3. VALSARTAN 320MG [Suspect]
     Active Substance: VALSARTAN
     Indication: HYPERTENSION
     Dosage: ?          QUANTITY:90 TABLET(S);?
     Route: 048
     Dates: end: 20180716
  4. VALSARTAN 80MG [Suspect]
     Active Substance: VALSARTAN
     Indication: HYPERTENSION
     Dosage: ?          QUANTITY:90 TABLET(S);?
     Route: 048
     Dates: end: 20180716
  5. CENTRUM MULTIVITAMIN?MINERAL [Concomitant]
  6. ARMOUR THYROID [Concomitant]
     Active Substance: THYROID, PORCINE
  7. CHROMIUM PICOLINATE [Concomitant]
     Active Substance: CHROMIUM PICOLINATE
  8. GINGKO BILOBA [Concomitant]
     Active Substance: GINKGO
  9. INVOKANA [Concomitant]
     Active Substance: CANAGLIFLOZIN

REACTIONS (6)
  - Haemoptysis [None]
  - Product use issue [None]
  - Diarrhoea [None]
  - Gastrointestinal disorder [None]
  - Food intolerance [None]
  - Cough [None]

NARRATIVE: CASE EVENT DATE: 20180715
